FAERS Safety Report 6652926-6 (Version None)
Quarter: 2010Q1

REPORT INFORMATION
  Report Type: 
  Country: None (occurrence: None)
  Receive Date: 20100326
  Receipt Date: 20100317
  Transmission Date: 20100710
  Serious: Yes (Hospitalization)
  Sender: FDA-Public Use
  Company Number: US-NOVOPROD-302225

PATIENT
  Sex: Male
  Weight: 107.3 kg

DRUGS (28)
  1. NOVOLOG [Suspect]
     Indication: TYPE 2 DIABETES MELLITUS
     Dosage: UNK
     Route: 058
  2. LEVEMIR [Suspect]
     Indication: TYPE 2 DIABETES MELLITUS
     Dosage: 15 IU, QD (AT BEDTIME)
     Route: 058
     Dates: start: 20091209
  3. GLYBURIDE [Concomitant]
     Indication: TYPE 2 DIABETES MELLITUS
     Dosage: 5 MG, QD
     Route: 048
  4. METFORMIN HYDROCHLORIDE [Concomitant]
     Indication: TYPE 2 DIABETES MELLITUS
     Dosage: 850 MG, TID
     Route: 048
  5. METOCLOPRAMIDE [Concomitant]
     Indication: NAUSEA
     Dosage: UNK
     Route: 048
     Dates: start: 20091209
  6. OMEPRAZOLE [Concomitant]
     Indication: GASTROOESOPHAGEAL REFLUX DISEASE
     Dosage: 20 MG, QD
     Route: 048
     Dates: end: 20091209
  7. OMEPRAZOLE [Concomitant]
     Dosage: 20 MG, QD
     Route: 048
  8. ASPIRIN [Concomitant]
     Indication: DRUG USE FOR UNKNOWN INDICATION
     Dosage: UNK
  9. BACLOFEN [Concomitant]
     Indication: MUSCLE RELAXANT THERAPY
     Dosage: 10 MG, TID
     Route: 048
  10. DOCUSATE [Concomitant]
     Indication: DRUG USE FOR UNKNOWN INDICATION
     Dosage: UNK
     Route: 048
  11. ENOXAPARIN SODIUM [Concomitant]
     Indication: DRUG USE FOR UNKNOWN INDICATION
     Route: 058
  12. FERROUS SULFATE TAB [Concomitant]
     Indication: MICROCYTIC ANAEMIA
     Dosage: UNK
     Route: 048
  13. GABAPENTIN [Concomitant]
     Indication: CONVULSION
     Dosage: 600 MG, TID
     Route: 048
  14. HEPARIN [Concomitant]
     Indication: DRUG USE FOR UNKNOWN INDICATION
     Dosage: UNK
     Route: 048
  15. LISINOPRIL [Concomitant]
     Indication: HYPERTENSION
     Dosage: 10 MG, QD
     Route: 048
  16. NORTRIPTYLINE HCL [Concomitant]
     Indication: NEURALGIA
     Dosage: 10 MG, QD (BEDTIME)
     Route: 048
  17. OXYCODONE AND ACETAMINOPHEN [Concomitant]
     Indication: DRUG USE FOR UNKNOWN INDICATION
     Dosage: 5 MG/325 MG
     Route: 048
  18. PROPRANOLOL [Concomitant]
     Indication: DRUG USE FOR UNKNOWN INDICATION
     Dosage: 160 MG, QD
     Route: 048
  19. SALSALATE [Concomitant]
     Indication: PAIN
     Dosage: 500 MG, TID (EVERY 8 HOURS)
     Route: 048
  20. SENNOSIDE                          /00571901/ [Concomitant]
     Indication: DRUG USE FOR UNKNOWN INDICATION
     Dosage: UNK
     Route: 048
  21. SIMVASTATIN [Concomitant]
     Indication: HYPERLIPIDAEMIA
     Dosage: 40 MG, QD (BEDTIME)
     Route: 048
  22. SODIUM CHLORIDE [Concomitant]
     Indication: DRUG USE FOR UNKNOWN INDICATION
     Dosage: 10 ML
  23. TERAZOSIN HCL [Concomitant]
     Indication: BENIGN PROSTATIC HYPERPLASIA
     Dosage: UNK
     Route: 048
  24. TUBERSOL [Concomitant]
     Indication: DRUG USE FOR UNKNOWN INDICATION
     Dosage: 5U
  25. ANTIBIOTICS [Concomitant]
     Indication: TOOTH ABSCESS
  26. LANTUS [Concomitant]
     Indication: TYPE 2 DIABETES MELLITUS
     Dosage: AT MEAL TIME
  27. ZOFRAN [Concomitant]
     Indication: NAUSEA
  28. DOXAZOSIN MESYLATE [Concomitant]
     Indication: DRUG USE FOR UNKNOWN INDICATION
     Dosage: 8 MG, QD
     Route: 048

REACTIONS (5)
  - ARTHRITIS BACTERIAL [None]
  - BLOOD GLUCOSE INCREASED [None]
  - NAUSEA [None]
  - PAIN IN EXTREMITY [None]
  - VOMITING [None]
